FAERS Safety Report 9944469 (Version 1)
Quarter: 2014Q1

REPORT INFORMATION
  Report Type: Spontaneous
  Country: US (occurrence: US)
  Receive Date: 20140303
  Receipt Date: 20140303
  Transmission Date: 20141002
  Serious: No
  Sender: FDA-Public Use
  Company Number: US-ABBVIE-13P-163-1052045-00

PATIENT
  Age: 13 Year
  Sex: Male
  Weight: 52.66 kg

DRUGS (1)
  1. HUMIRA [Suspect]
     Indication: ANKYLOSING SPONDYLITIS
     Route: 058
     Dates: start: 20120820

REACTIONS (3)
  - Off label use [Unknown]
  - Device malfunction [Unknown]
  - Incorrect dose administered [Unknown]
